FAERS Safety Report 4436594-X (Version None)
Quarter: 2004Q3

REPORT INFORMATION
  Report Type: 
  Country: None (occurrence: None)
  Receive Date: 20040830
  Receipt Date: 20040712
  Transmission Date: 20050211
  Serious: No
  Sender: FDA-Public Use
  Company Number: US-BRISTOL-MYERS SQUIBB COMPANY-12638326

PATIENT
  Age: 30 Year
  Sex: Male
  Weight: 59 kg

DRUGS (6)
  1. ABILIFY [Suspect]
     Indication: SCHIZOPHRENIA
     Dosage: DECREASED TO 5 MG/DAY
     Route: 048
     Dates: start: 20040702
  2. PROTONIX [Concomitant]
  3. VITAMIN B COMPLEX CAP [Concomitant]
  4. VITAMIN E [Concomitant]
  5. MULTI-VITAMIN [Concomitant]
  6. ZYPREXA [Concomitant]

REACTIONS (4)
  - ANXIETY [None]
  - DYSPNOEA [None]
  - INSOMNIA [None]
  - TARDIVE DYSKINESIA [None]
